FAERS Safety Report 20627140 (Version 1)
Quarter: 2022Q1

REPORT INFORMATION
  Report Type: Spontaneous
  Country: US (occurrence: US)
  Receive Date: 20220323
  Receipt Date: 20220323
  Transmission Date: 20220424
  Serious: Yes (Other)
  Sender: FDA-Public Use
  Company Number: US-GLAXOSMITHKLINE-US2022GSK051520

PATIENT
  Sex: Male

DRUGS (3)
  1. ZANTAC [Suspect]
     Active Substance: RANITIDINE HYDROCHLORIDE
     Dosage: UNK UNK, QD
     Route: 065
     Dates: start: 201201, end: 202101
  2. ZANTAC [Suspect]
     Active Substance: RANITIDINE HYDROCHLORIDE
     Dosage: UNK, QD
     Route: 065
     Dates: start: 201701, end: 202101
  3. RANITIDINE [Suspect]
     Active Substance: RANITIDINE
     Dosage: 1 MG/ML, WE
     Route: 065
     Dates: start: 202101, end: 202101

REACTIONS (1)
  - Gastrointestinal carcinoma [Unknown]
